FAERS Safety Report 11738186 (Version 1)
Quarter: 2015Q4

REPORT INFORMATION
  Report Type: Spontaneous
  Country: FR (occurrence: FR)
  Receive Date: 20151113
  Receipt Date: 20151113
  Transmission Date: 20160304
  Serious: Yes (Hospitalization)
  Sender: FDA-Public Use
  Company Number: FR-CELGENE-FRA-2015110165

PATIENT
  Age: 69 Year
  Sex: Male

DRUGS (16)
  1. AZACITIDINE. [Suspect]
     Active Substance: AZACITIDINE
     Dosage: 5 MILLIGRAM
     Route: 065
     Dates: start: 20150223, end: 20150227
  2. BACTRIM [Concomitant]
     Active Substance: SULFAMETHOXAZOLE\TRIMETHOPRIM
     Indication: PRODUCT USED FOR UNKNOWN INDICATION
     Dosage: (TRIMETHOPRIM 160 MG, SULFAMETHOXAZOLE 800 MG)
     Route: 065
     Dates: start: 201501
  3. ZELITREX [Concomitant]
     Active Substance: VALACYCLOVIR HYDROCHLORIDE
     Indication: PRODUCT USED FOR UNKNOWN INDICATION
     Dosage: VALACICVLOVIR
     Route: 048
     Dates: start: 201501
  4. ITRACONAZOLE MERCK [Suspect]
     Active Substance: ITRACONAZOLE
     Route: 048
     Dates: start: 201501
  5. AZOPT [Concomitant]
     Active Substance: BRINZOLAMIDE
     Indication: PRODUCT USED FOR UNKNOWN INDICATION
     Route: 065
  6. DIFFU-K [Concomitant]
     Active Substance: POTASSIUM CHLORIDE
     Indication: PRODUCT USED FOR UNKNOWN INDICATION
     Dosage: POTASSIUM CHLORIDE
     Route: 065
     Dates: start: 201504
  7. AZACITIDINE. [Suspect]
     Active Substance: AZACITIDINE
     Route: 041
     Dates: start: 20150817, end: 20150821
  8. ITRACONAZOLE MERCK [Suspect]
     Active Substance: ITRACONAZOLE
     Indication: PRODUCT USED FOR UNKNOWN INDICATION
     Route: 048
     Dates: start: 201509, end: 20150922
  9. PAROXETINE [Concomitant]
     Active Substance: PAROXETINE\PAROXETINE HYDROCHLORIDE
     Indication: PRODUCT USED FOR UNKNOWN INDICATION
     Dosage: 85.7143 MILLIGRAM
     Route: 065
     Dates: start: 20150610
  10. AZACITIDINE. [Suspect]
     Active Substance: AZACITIDINE
     Indication: MYELODYSPLASTIC SYNDROME
     Route: 065
     Dates: start: 20150126, end: 20150130
  11. SPECIAFOLDINE [Concomitant]
     Active Substance: FOLIC ACID
     Indication: PRODUCT USED FOR UNKNOWN INDICATION
     Dosage: FOLIC ACID
     Route: 048
     Dates: start: 201501
  12. GRANOCYTE [Concomitant]
     Active Substance: LENOGRASTIM
     Indication: PRODUCT USED FOR UNKNOWN INDICATION
     Dosage: LENOGRASTIM
     Route: 065
  13. AZACITIDINE. [Suspect]
     Active Substance: AZACITIDINE
     Route: 065
     Dates: start: 20150323, end: 20150327
  14. GANFORT [Concomitant]
     Active Substance: BIMATOPROST\TIMOLOL
     Indication: PRODUCT USED FOR UNKNOWN INDICATION
     Dosage: BIMATOPROST 0.3 MG/ML, TIMOLOL 5 MG/ML)
     Route: 065
  15. NEORECORMON [Concomitant]
     Active Substance: ERYTHROPOIETIN
     Indication: PRODUCT USED FOR UNKNOWN INDICATION
     Dosage: EPOETIN BETA
     Route: 065
  16. LAXILIX [Concomitant]
     Indication: PRODUCT USED FOR UNKNOWN INDICATION
     Dosage: 600 MILLIGRAM
     Route: 065
     Dates: start: 20150428, end: 20150609

REACTIONS (15)
  - Acute kidney injury [Unknown]
  - Pericardial effusion [None]
  - Ejection fraction decreased [None]
  - Right atrial dilatation [None]
  - Pleural effusion [None]
  - Generalised oedema [Recovered/Resolved]
  - Hepatosplenomegaly [None]
  - General physical health deterioration [None]
  - Left atrial dilatation [None]
  - Pulmonary arterial hypertension [None]
  - Dilatation ventricular [None]
  - Fatigue [None]
  - Acute myeloid leukaemia [None]
  - Myelodysplastic syndrome transformation [None]
  - Hypotension [None]

NARRATIVE: CASE EVENT DATE: 201504
